FAERS Safety Report 5524681-4 (Version None)
Quarter: 2007Q4

REPORT INFORMATION
  Report Type: 
  Country: None (occurrence: None)
  Receive Date: 20071123
  Receipt Date: 20071115
  Transmission Date: 20080405
  Serious: Yes (Hospitalization)
  Sender: FDA-Public Use
  Company Number: US-PFIZER INC-2007028642

PATIENT
  Sex: Female
  Weight: 58.5 kg

DRUGS (7)
  1. SUTENT [Suspect]
     Indication: MALIGNANT MELANOMA
     Route: 048
     Dates: start: 20070307, end: 20070701
  2. TEMODAR [Suspect]
     Indication: MALIGNANT MELANOMA
     Route: 048
     Dates: start: 20070228, end: 20070701
  3. ZOFRAN [Concomitant]
     Route: 048
  4. LOTREL [Concomitant]
     Dosage: TEXT:5/10-FREQ:DAILY
     Route: 048
     Dates: start: 20040101, end: 20070620
  5. LAXATIVES [Concomitant]
     Dosage: TEXT:1 TAB
     Route: 048
  6. ONDANSETRON [Concomitant]
     Dates: start: 20060328, end: 20070705
  7. PSYLLIUM HYDROPHILIC MUCILLOID [Concomitant]
     Dates: start: 20070324

REACTIONS (1)
  - DIVERTICULITIS [None]
